FAERS Safety Report 10446635 (Version 1)
Quarter: 2014Q3

REPORT INFORMATION
  Report Type: Spontaneous
  Country: AU (occurrence: None)
  Receive Date: 20140910
  Receipt Date: 20140910
  Transmission Date: 20150326
  Serious: No
  Sender: FDA-Public Use
  Company Number: None

PATIENT
  Age: 52 Year
  Sex: Female

DRUGS (1)
  1. TAMIFLU [Suspect]
     Active Substance: OSELTAMIVIR PHOSPHATE
     Indication: VIRAL INFECTION
     Dosage: 10 PILLS TWICE DAILY TAKEN BY MOUTH
     Route: 048
     Dates: start: 20140907, end: 20140908

REACTIONS (6)
  - Cough [None]
  - Diarrhoea [None]
  - Product packaging issue [None]
  - Vomiting [None]
  - Haemoptysis [None]
  - Nausea [None]

NARRATIVE: CASE EVENT DATE: 20140908
